FAERS Safety Report 6251666-5 (Version None)
Quarter: 2009Q2

REPORT INFORMATION
  Report Type: 
  Country: None (occurrence: None)
  Receive Date: 20090626
  Receipt Date: 20090626
  Transmission Date: 20091009
  Serious: Yes (Life-Threatening, Hospitalization)
  Sender: FDA-Public Use
  Company Number: None

PATIENT
  Sex: Female
  Weight: 57.6068 kg

DRUGS (1)
  1. COUMADIN [Suspect]
     Indication: THROMBOSIS
     Dosage: 30 ONE PER DAY PO
     Route: 048
     Dates: start: 20060501, end: 20090501

REACTIONS (4)
  - BLOOD DISORDER [None]
  - EPISTAXIS [None]
  - MOUTH HAEMORRHAGE [None]
  - SKIN HAEMORRHAGE [None]
